FAERS Safety Report 6169513-9 (Version None)
Quarter: 2009Q2

REPORT INFORMATION
  Report Type: 
  Country: None (occurrence: None)
  Receive Date: 20090424
  Receipt Date: 20081220
  Transmission Date: 20091009
  Serious: No
  Sender: FDA-Public Use
  Company Number: SPV1-2008-02816

PATIENT
  Age: 6 Year
  Sex: Female
  Weight: 26.8 kg

DRUGS (3)
  1. VYVANSE [Suspect]
     Indication: ATTENTION DEFICIT/HYPERACTIVITY DISORDER
     Dosage: 30 MG, 1X/DAY:QD, ORAL
     Route: 048
     Dates: start: 20081217
  2. ADVAIR DISKUS 100/50 [Concomitant]
  3. SINGULAIR [Concomitant]

REACTIONS (5)
  - DEPRESSED MOOD [None]
  - HYPERAESTHESIA [None]
  - MOOD ALTERED [None]
  - NERVOUSNESS [None]
  - SOMNOLENCE [None]
